FAERS Safety Report 9992447 (Version 2)
Quarter: 2014Q2

REPORT INFORMATION
  Report Type: Spontaneous
  Country: AR (occurrence: AR)
  Receive Date: 20140310
  Receipt Date: 20140428
  Transmission Date: 20141212
  Serious: Yes (Hospitalization)
  Sender: FDA-Public Use
  Company Number: AR-GLAXOSMITHKLINE-B0974919A

PATIENT
  Age: 35 Year
  Sex: Female

DRUGS (4)
  1. LAMOTRIGINE [Suspect]
     Indication: CONVULSION
     Dosage: 300MG PER DAY
     Route: 065
  2. CARBAMAZEPINE [Suspect]
     Indication: CONVULSION
     Dosage: 600MG PER DAY
  3. ALPRAZOLAM [Concomitant]
     Dosage: .5MG PER DAY
  4. VALPROIC ACID [Concomitant]
     Dosage: 750MG PER DAY

REACTIONS (18)
  - Stevens-Johnson syndrome [Recovering/Resolving]
  - Odynophagia [Unknown]
  - Skin lesion [Unknown]
  - Concomitant disease aggravated [Unknown]
  - Rash [Unknown]
  - Rash macular [Unknown]
  - Burning sensation [Unknown]
  - Hyperaesthesia [Unknown]
  - Nikolsky^s sign [Unknown]
  - Mouth ulceration [Unknown]
  - Oral mucosa erosion [Unknown]
  - Conjunctival oedema [Unknown]
  - Secretion discharge [Unknown]
  - Adhesion [Unknown]
  - Pyrexia [Unknown]
  - Skin hyperpigmentation [Unknown]
  - Blister [Unknown]
  - Oedema [Unknown]
